FAERS Safety Report 20505689 (Version 1)
Quarter: 2022Q1

REPORT INFORMATION
  Report Type: Spontaneous
  Country: None (occurrence: CH)
  Receive Date: 20220223
  Receipt Date: 20220223
  Transmission Date: 20220423
  Serious: Yes (Other)
  Sender: FDA-Public Use
  Company Number: None

PATIENT
  Age: 72 Year
  Sex: Male

DRUGS (1)
  1. GENTAMICIN SULFATE [Suspect]
     Active Substance: GENTAMICIN SULFATE

REACTIONS (6)
  - Uveitis [Recovered/Resolved]
  - Chorioretinal disorder [Recovered/Resolved with Sequelae]
  - Pyrexia [Unknown]
  - Retinal neovascularisation [Unknown]
  - Atypical mycobacterial infection [Unknown]
  - Annuloplasty [None]
